FAERS Safety Report 15016970 (Version 2)
Quarter: 2018Q3

REPORT INFORMATION
  Report Type: Spontaneous
  Country: US (occurrence: US)
  Receive Date: 20180615
  Receipt Date: 20180713
  Transmission Date: 20181010
  Serious: Yes (Other)
  Sender: FDA-Public Use
  Company Number: US-GLAXOSMITHKLINE-US2018102950

PATIENT
  Age: 63 Year
  Sex: Female

DRUGS (1)
  1. TUMS CHEWY BITES [Suspect]
     Active Substance: CALCIUM CARBONATE
     Indication: DYSPEPSIA
     Dosage: UNK
     Dates: start: 20180604

REACTIONS (4)
  - Product package associated injury [Unknown]
  - Product quality issue [Unknown]
  - Skin haemorrhage [Unknown]
  - Laceration [Unknown]

NARRATIVE: CASE EVENT DATE: 20180604
